FAERS Safety Report 8056329-1 (Version None)
Quarter: 2012Q1

REPORT INFORMATION
  Report Type: 
  Country: None (occurrence: None)
  Receive Date: 20120119
  Receipt Date: 20120109
  Transmission Date: 20120608
  Serious: Yes (Hospitalization)
  Sender: FDA-Public Use
  Company Number: US-ELI_LILLY_AND_COMPANY-US201107006663

PATIENT
  Sex: Female

DRUGS (4)
  1. SYNTHROID [Concomitant]
  2. FORTEO [Suspect]
     Indication: OSTEOPOROSIS
     Dosage: 20 UG, QD
     Dates: start: 20110622
  3. FORTEO [Suspect]
     Dosage: 20 UG, QD
     Dates: end: 20111231
  4. RAMIPRIL [Concomitant]

REACTIONS (6)
  - BLADDER DYSFUNCTION [None]
  - DIZZINESS [None]
  - DRUG DOSE OMISSION [None]
  - NAUSEA [None]
  - NERVE COMPRESSION [None]
  - PRESYNCOPE [None]
